FAERS Safety Report 11982609 (Version 1)
Quarter: 2016Q1

REPORT INFORMATION
  Report Type: Spontaneous
  Country: US (occurrence: US)
  Receive Date: 20160201
  Receipt Date: 20160201
  Transmission Date: 20160526
  Serious: Yes (Hospitalization)
  Sender: FDA-Public Use
  Company Number: US-CIPLA LTD.-2016US00555

PATIENT

DRUGS (3)
  1. CARBAMAZEPINE. [Suspect]
     Active Substance: CARBAMAZEPINE
     Dosage: UNK
     Route: 065
  2. RISPERIDONE. [Suspect]
     Active Substance: RISPERIDONE
     Dosage: UNK
     Route: 065
  3. TOPIRAMATE. [Suspect]
     Active Substance: TOPIRAMATE
     Dosage: UNK
     Route: 065

REACTIONS (9)
  - Multiple organ dysfunction syndrome [Unknown]
  - Heat stroke [Unknown]
  - Ischaemic gastritis [Unknown]
  - Disseminated intravascular coagulation [Unknown]
  - Upper gastrointestinal haemorrhage [Unknown]
  - Acute kidney injury [Unknown]
  - Liver injury [Unknown]
  - Hypotension [Unknown]
  - Gastric perforation [Unknown]
